FAERS Safety Report 16325085 (Version 1)
Quarter: 2019Q2

REPORT INFORMATION
  Report Type: Spontaneous
  Country: CA (occurrence: CA)
  Receive Date: 20190517
  Receipt Date: 20190517
  Transmission Date: 20190711
  Serious: Yes (Other)
  Sender: FDA-Public Use
  Company Number: CA-009507513-1905CAN006824

PATIENT
  Sex: Female

DRUGS (7)
  1. IBUPROFEN. [Concomitant]
     Active Substance: IBUPROFEN
     Indication: NERVE COMPRESSION
     Dosage: 1 DOSAGE FORM
     Route: 048
  2. TERBUTALINE SULFATE. [Concomitant]
     Active Substance: TERBUTALINE SULFATE
     Indication: ASTHMA
     Dosage: 2.0 DOSAGE FORM
     Route: 050
  3. SYMBICORT [Concomitant]
     Active Substance: BUDESONIDE\FORMOTEROL FUMARATE DIHYDRATE
     Indication: ASTHMA
     Dosage: 2.0 DOSAGE FORM, 2 EVERY 1 DAY
     Route: 050
  4. OMNARIS [Concomitant]
     Active Substance: CICLESONIDE
     Indication: RHINITIS ALLERGIC
     Dosage: 4.0 DOSAGE FORM,1 EVERY 24HOURS
     Route: 045
  5. LORATADINE. [Concomitant]
     Active Substance: LORATADINE
     Indication: CONJUNCTIVITIS
     Dosage: 1.0 DOSAGE FORM, 1 EVERY 24 HOURS
     Route: 048
  6. SPIRIVA [Concomitant]
     Active Substance: TIOTROPIUM BROMIDE MONOHYDRATE
     Indication: ASTHMA
     Dosage: 2.0 MILLIGRAM, 1 EVERY 24 HOURS
     Route: 050
  7. SINGULAIR [Suspect]
     Active Substance: MONTELUKAST SODIUM
     Indication: ASTHMA
     Dosage: 10.0 MILLIGRAM, 1 EVERY 24 HOURS
     Route: 048

REACTIONS (10)
  - Chest discomfort [Unknown]
  - Paranasal sinus discomfort [Unknown]
  - Nasal congestion [Unknown]
  - Conjunctivitis [Unknown]
  - Blister [Unknown]
  - Swelling face [Unknown]
  - Parosmia [Unknown]
  - Dyspnoea [Unknown]
  - Sinusitis [Unknown]
  - Pneumonia [Unknown]
